FAERS Safety Report 23617066 (Version 5)
Quarter: 2024Q2

REPORT INFORMATION
  Report Type: Spontaneous
  Country: JP (occurrence: JP)
  Receive Date: 20240311
  Receipt Date: 20240606
  Transmission Date: 20240716
  Serious: Yes (Death, Life-Threatening, Hospitalization, Other)
  Sender: FDA-Public Use
  Company Number: JP-ONO-2024JP005131

PATIENT
  Age: 65 Year
  Sex: Male
  Weight: 52.7 kg

DRUGS (3)
  1. OPDIVO [Suspect]
     Active Substance: NIVOLUMAB
     Indication: Metastatic renal cell carcinoma
     Route: 041
     Dates: start: 20230928, end: 20240301
  2. CABOZANTINIB S-MALATE [Suspect]
     Active Substance: CABOZANTINIB S-MALATE
     Indication: Metastatic renal cell carcinoma
     Route: 048
     Dates: start: 20230928, end: 20231109
  3. CABOZANTINIB S-MALATE [Suspect]
     Active Substance: CABOZANTINIB S-MALATE
     Route: 048
     Dates: start: 20231124, end: 20240304

REACTIONS (7)
  - Pulmonary haemorrhage [Recovering/Resolving]
  - Immune-mediated enterocolitis [Fatal]
  - Pulmonary embolism [Fatal]
  - Disseminated intravascular coagulation [Unknown]
  - Dehydration [Unknown]
  - Hypoalbuminaemia [Unknown]
  - Blood pressure decreased [Unknown]

NARRATIVE: CASE EVENT DATE: 20240304
